FAERS Safety Report 4527333-2 (Version None)
Quarter: 2004Q4

REPORT INFORMATION
  Report Type: 
  Country: None (occurrence: None)
  Receive Date: 20041214
  Receipt Date: 20041214
  Transmission Date: 20050328
  Serious: Yes (Hospitalization)
  Sender: FDA-Public Use
  Company Number: None

PATIENT
  Age: 76 Year
  Sex: Female
  Weight: 53.5 kg

DRUGS (6)
  1. PACLITAXEL [Suspect]
     Indication: OVARIAN CANCER
     Dosage: 175MG/M2  DAY 1 EVERY 21  INTRAVENOUS
     Route: 042
     Dates: start: 20041201, end: 20041201
  2. GEMCITABINE [Suspect]
     Indication: OVARIAN CANCER
     Dosage: 800MG/M2  DAY1,8 EVERY21  INTRAVENOUS
     Route: 042
     Dates: start: 20041201, end: 20041208
  3. DEXAMETHASONE [Concomitant]
  4. PEPCID [Concomitant]
  5. KYTRIL [Concomitant]
  6. BENADRYL [Concomitant]

REACTIONS (8)
  - ANAEMIA [None]
  - DEHYDRATION [None]
  - FEBRILE NEUTROPENIA [None]
  - GASTROINTESTINAL PAIN [None]
  - HYPONATRAEMIA [None]
  - NAUSEA [None]
  - THROMBOCYTOPENIA [None]
  - VOMITING [None]
